FAERS Safety Report 8964060 (Version 1)
Quarter: 2012Q4

REPORT INFORMATION
  Report Type: Report from Study
  Country: CA (occurrence: CA)
  Receive Date: 20121214
  Receipt Date: 20121214
  Transmission Date: 20130627
  Serious: Yes (Other)
  Sender: FDA-Public Use
  Company Number: CA-JNJFOC-20121203270

PATIENT
  Sex: Female
  Weight: 87 kg

DRUGS (6)
  1. REMICADE [Suspect]
     Indication: RHEUMATOID ARTHRITIS
     Route: 042
     Dates: start: 20080721
  2. TYLENOL NO.3 [Concomitant]
     Dosage: taken as needed
     Route: 048
  3. IMOVANE [Concomitant]
     Dosage: taken as needed
     Route: 048
  4. SYNTHROID [Concomitant]
     Route: 048
  5. CRESTOR [Concomitant]
     Route: 048
  6. NAPROSYN [Concomitant]
     Route: 048

REACTIONS (1)
  - Sjogren^s syndrome [Unknown]
